FAERS Safety Report 18767078 (Version 1)
Quarter: 2021Q1

REPORT INFORMATION
  Report Type: Other
  Country: IT (occurrence: IT)
  Receive Date: 20210121
  Receipt Date: 20210121
  Transmission Date: 20210419
  Serious: Yes (Other)
  Sender: FDA-Public Use
  Company Number: IT-ROCHE-2711296

PATIENT
  Age: 61 Year
  Sex: Female
  Weight: 54 kg

DRUGS (3)
  1. NAB?PACLITAXEL [Suspect]
     Active Substance: PACLITAXEL
     Indication: TRIPLE NEGATIVE BREAST CANCER
     Dosage: 7 ADMINISTRATIONS OF ATEZOLIZUMAB PLUS NAB?PACLITAXEL
     Route: 065
  2. ATEZOLIZUMAB. [Suspect]
     Active Substance: ATEZOLIZUMAB
     Indication: TRIPLE NEGATIVE BREAST CANCER
     Dosage: 7 ADMINISTRATIONS OF ATEZOLIZUMAB PLUS NAB?PACLITAXEL?ON 07/SEP/2020 RECEIVED LAST DOSE OF ATEZOLIZU
     Route: 042
  3. ATEZOLIZUMAB. [Suspect]
     Active Substance: ATEZOLIZUMAB
     Dosage: DAYS 1 AND 15 Q 28 IN COMBINATION WITH NAB?PACLITAXEL
     Route: 042
     Dates: end: 20201029

REACTIONS (2)
  - Eosinophilia [Not Recovered/Not Resolved]
  - Rhinitis allergic [Recovering/Resolving]

NARRATIVE: CASE EVENT DATE: 20200921
